FAERS Safety Report 18550322 (Version 10)
Quarter: 2022Q4

REPORT INFORMATION
  Report Type: Spontaneous
  Country: US (occurrence: US)
  Receive Date: 20201126
  Receipt Date: 20221227
  Transmission Date: 20230112
  Serious: No
  Sender: FDA-Public Use
  Company Number: US-PFIZER INC-2020464186

PATIENT
  Age: 63 Year
  Sex: Female
  Weight: 79.83 kg

DRUGS (5)
  1. IBRANCE [Suspect]
     Active Substance: PALBOCICLIB
     Indication: Breast cancer metastatic
     Dosage: 125 MG
     Dates: start: 20201109
  2. IBRANCE [Suspect]
     Active Substance: PALBOCICLIB
     Indication: Lung cancer metastatic
     Dosage: 125 MG, CYCLIC (125MG ONE TIME A DAY FOR 21 DAYS AND OFF FOR 7 DAYS)
     Dates: start: 202011
  3. LETROZOLE [Concomitant]
     Active Substance: LETROZOLE
     Indication: Breast cancer metastatic
     Dosage: 2.5MG DAILY (WITH IBRANCE, EVEN WHEN OFF IBRANCE, SO SHE WOULD TAKE 30 PILLS IN 30 DAYS)
  4. LETROZOLE [Concomitant]
     Active Substance: LETROZOLE
     Indication: Lung cancer metastatic
  5. EFFEXOR [Concomitant]
     Active Substance: VENLAFAXINE HYDROCHLORIDE
     Dosage: 75 MG, 1X/DAY

REACTIONS (5)
  - Oral mucosal eruption [Recovered/Resolved]
  - Urinary tract infection [Not Recovered/Not Resolved]
  - Hypertension [Not Recovered/Not Resolved]
  - Allergic reaction to excipient [Unknown]
  - Bladder spasm [Unknown]

NARRATIVE: CASE EVENT DATE: 20201101
